FAERS Safety Report 14446832 (Version 1)
Quarter: 2018Q1

REPORT INFORMATION
  Report Type: Spontaneous
  Country: US (occurrence: US)
  Receive Date: 20180126
  Receipt Date: 20180126
  Transmission Date: 20180509
  Serious: Yes (Death, Hospitalization)
  Sender: FDA-Public Use
  Company Number: PHEH2018US003018

PATIENT
  Age: 5 Year
  Sex: Male

DRUGS (1)
  1. JADENU [Suspect]
     Active Substance: DEFERASIROX
     Indication: IRON OVERLOAD
     Dosage: 19 MG/KG, QD
     Route: 048

REACTIONS (4)
  - Ammonia increased [Fatal]
  - Brain oedema [Fatal]
  - Nervous system disorder [Fatal]
  - Mental disorder [Unknown]

NARRATIVE: CASE EVENT DATE: 20180119
